FAERS Safety Report 14484112 (Version 2)
Quarter: 2018Q1

REPORT INFORMATION
  Report Type: Spontaneous
  Country: US (occurrence: US)
  Receive Date: 20180205
  Receipt Date: 20180206
  Transmission Date: 20180509
  Serious: No
  Sender: FDA-Public Use
  Company Number: US-JNJFOC-20180125545

PATIENT
  Age: 74 Year
  Sex: Female
  Weight: 45.36 kg

DRUGS (2)
  1. ZYRTEC 10MG IR TABLET [Suspect]
     Active Substance: CETIRIZINE HYDROCHLORIDE
     Route: 065
  2. ZYRTEC 10MG IR TABLET [Suspect]
     Active Substance: CETIRIZINE HYDROCHLORIDE
     Indication: MULTIPLE ALLERGIES
     Dosage: FOR 3 WEEKS IN THE MORNINGS
     Route: 065
     Dates: end: 20180119

REACTIONS (2)
  - Product label issue [Unknown]
  - Drug ineffective [Unknown]
